FAERS Safety Report 14119673 (Version 2)
Quarter: 2017Q4

REPORT INFORMATION
  Report Type: Report from Study
  Country: DE (occurrence: DE)
  Receive Date: 20171024
  Receipt Date: 20171026
  Transmission Date: 20180321
  Serious: Yes (Other)
  Sender: FDA-Public Use
  Company Number: DE-ASTRAZENECA-2017SF06127

PATIENT
  Age: 75 Year
  Sex: Male

DRUGS (5)
  1. HEPARIN [Concomitant]
     Active Substance: HEPARIN SODIUM
  2. APIXABAN [Concomitant]
     Active Substance: APIXABAN
     Dates: start: 20160314
  3. PROPOFOL. [Concomitant]
     Active Substance: PROPOFOL
  4. TICAGRELOR. [Suspect]
     Active Substance: TICAGRELOR
     Indication: ACUTE CORONARY SYNDROME
     Route: 048
  5. ACETYLSALICYLIC ACID [Suspect]
     Active Substance: ASPIRIN
     Indication: ACUTE CORONARY SYNDROME
     Dosage: NON AZ PRODUCT MAINTENANCE DOSE
     Route: 048

REACTIONS (1)
  - Atrial fibrillation [Recovered/Resolved]
